FAERS Safety Report 7584705-X (Version None)
Quarter: 2011Q2

REPORT INFORMATION
  Report Type: 
  Country: None (occurrence: None)
  Receive Date: 20110630
  Receipt Date: 20110616
  Transmission Date: 20111010
  Serious: Yes (Other)
  Sender: FDA-Public Use
  Company Number: PHHY2011JP54282

PATIENT
  Age: 46 Year
  Sex: Female

DRUGS (2)
  1. RASILEZ [Suspect]
     Dosage: 150 MG DAILY
     Route: 048
  2. BETA BLOCKING AGENTS [Concomitant]
     Dosage: UNK
     Route: 048

REACTIONS (2)
  - INSOMNIA [None]
  - BLOOD PRESSURE INCREASED [None]
